FAERS Safety Report 19998889 (Version 1)
Quarter: 2021Q4

REPORT INFORMATION
  Report Type: Report from Study
  Country: CA (occurrence: CA)
  Receive Date: 20211026
  Receipt Date: 20211026
  Transmission Date: 20220303
  Serious: Yes (Other)
  Sender: FDA-Public Use
  Company Number: CA-PFIZER INC-202101408890

PATIENT
  Age: 77 Year
  Sex: Female

DRUGS (1)
  1. BINIMETINIB [Suspect]
     Active Substance: BINIMETINIB
     Indication: Ovarian cancer
     Dosage: UNK
     Dates: start: 201411

REACTIONS (1)
  - Myasthenia gravis [Recovered/Resolved]
